FAERS Safety Report 9187766 (Version 1)
Quarter: 2013Q1

REPORT INFORMATION
  Report Type: Spontaneous
  Country: GB (occurrence: GB)
  Receive Date: 20130325
  Receipt Date: 20130325
  Transmission Date: 20140127
  Serious: Yes (Other)
  Sender: FDA-Public Use
  Company Number: PHHY2013GB027306

PATIENT
  Age: 91 Year
  Sex: Female
  Weight: 62 kg

DRUGS (12)
  1. DONEPEZIL [Suspect]
     Indication: DEMENTIA
     Dosage: 5 MG, UNK
     Route: 048
     Dates: start: 20130109
  2. DONEPEZIL [Suspect]
     Dosage: 10 MG, UNK
     Route: 048
     Dates: start: 20130210
  3. DONEPEZIL [Suspect]
     Dosage: 5 MG, UNK
     Route: 048
  4. CLOPIDOGREL [Concomitant]
  5. SIMVASTATIN [Concomitant]
  6. RAMIPRIL [Concomitant]
  7. AMITRIPTYLINE [Concomitant]
  8. MOVICOL [Concomitant]
  9. PARACETAMOL [Concomitant]
  10. ALENDRONIC ACID [Concomitant]
     Dosage: 1 DF, QW
  11. ADCAL [Concomitant]
  12. LANSOPRAZOLE [Concomitant]

REACTIONS (7)
  - Fluid intake reduced [Recovered/Resolved]
  - Hypophagia [Recovered/Resolved]
  - Decreased appetite [Recovered/Resolved]
  - Nausea [Recovered/Resolved]
  - Dizziness [Recovered/Resolved]
  - Fatigue [Recovered/Resolved]
  - Headache [Recovered/Resolved]
